FAERS Safety Report 23606613 (Version 2)
Quarter: 2024Q2

REPORT INFORMATION
  Report Type: Spontaneous
  Country: US (occurrence: US)
  Receive Date: 20240307
  Receipt Date: 20240418
  Transmission Date: 20240716
  Serious: No
  Sender: FDA-Public Use
  Company Number: US-PFIZER INC-202400057581

PATIENT
  Age: 71 Year
  Sex: Female
  Weight: 95.25 kg

DRUGS (14)
  1. OXBRYTA [Suspect]
     Active Substance: VOXELOTOR
     Indication: Sickle cell disease
     Dosage: THREE 500 MG TABLETS ONCE DAILY
     Route: 048
     Dates: start: 20240301
  2. OXBRYTA [Suspect]
     Active Substance: VOXELOTOR
     Dosage: 1500 MG, 1X/DAY
     Route: 048
     Dates: start: 202402
  3. FOLIC ACID [Concomitant]
     Active Substance: FOLIC ACID
     Indication: Sickle cell disease
     Dosage: 1 MG, IN THE MORNING
     Route: 048
  4. LEVOTHYROXINE [Concomitant]
     Active Substance: LEVOTHYROXINE\LEVOTHYROXINE SODIUM
     Indication: Thyroidectomy
     Dosage: 150 UG, 1X/DAY
     Route: 048
     Dates: start: 2010
  5. METOPROLOL [Concomitant]
     Active Substance: METOPROLOL
     Indication: Supraventricular tachycardia
     Dosage: 25 MG, IN THE MORNING AND EVENING
     Route: 048
     Dates: start: 2023
  6. HYDROXYUREA [Concomitant]
     Active Substance: HYDROXYUREA
     Indication: Sickle cell disease
     Dosage: TWO 500 MG CAPSULES ONCE A DAY
     Route: 048
  7. HYDROXYUREA [Concomitant]
     Active Substance: HYDROXYUREA
     Indication: Hypertension
  8. PRAVASTATIN [Concomitant]
     Active Substance: PRAVASTATIN
     Indication: Blood cholesterol abnormal
     Dosage: 10 MG, 1X/DAY
     Route: 048
  9. HYDROCHLOROTHIAZIDE\LOSARTAN [Concomitant]
     Active Substance: HYDROCHLOROTHIAZIDE\LOSARTAN
     Indication: Hypertension
     Dosage: 1 DF, DAILY
     Route: 048
  10. AMLODIPINE [Concomitant]
     Active Substance: AMLODIPINE BESYLATE
     Indication: Hypertension
     Dosage: 5 MG, 1X/DAY
     Route: 048
  11. LATANOPROST [Concomitant]
     Active Substance: LATANOPROST
     Indication: Retinopathy sickle cell
     Dosage: ONE DROP IN EACH EYE EVERY NIGHT
     Route: 047
  12. LATANOPROST [Concomitant]
     Active Substance: LATANOPROST
     Indication: Glaucoma
  13. ACETAMINOPHEN\HYDROCODONE [Concomitant]
     Active Substance: ACETAMINOPHEN\HYDROCODONE
     Indication: Sickle cell disease
     Dosage: 1 DF, AS NEEDED
     Route: 048
  14. CRIZANLIZUMAB [Concomitant]
     Active Substance: CRIZANLIZUMAB
     Dosage: ONCE PER MONTH, PER PORT X 2 YEARS.

REACTIONS (2)
  - Nausea [Recovered/Resolved]
  - Diarrhoea [Recovered/Resolved]

NARRATIVE: CASE EVENT DATE: 20240301
